FAERS Safety Report 5155036-2 (Version None)
Quarter: 2006Q4

REPORT INFORMATION
  Report Type: 
  Country: None (occurrence: None)
  Receive Date: 20061121
  Receipt Date: 20061106
  Transmission Date: 20070319
  Serious: Yes (Other)
  Sender: FDA-Public Use
  Company Number: US-ROCHE-470318

PATIENT
  Age: 54 Year
  Sex: Female
  Weight: 95.3 kg

DRUGS (8)
  1. CELLCEPT [Suspect]
     Indication: AUTOIMMUNE DISORDER
     Route: 065
     Dates: start: 20041115
  2. SINGULAIR [Concomitant]
     Route: 048
  3. AVANDIA [Concomitant]
     Route: 048
  4. TIMOLOL EYE DROPS [Concomitant]
     Route: 047
  5. HYDROCHLOROTHIAZIDE [Concomitant]
     Indication: HYPERTENSION
     Route: 048
  6. NAPROXEN [Concomitant]
  7. LIPITOR [Concomitant]
  8. SYNTHROID [Concomitant]

REACTIONS (4)
  - COUGH [None]
  - DILATATION VENTRICULAR [None]
  - DYSPNOEA [None]
  - OEDEMA PERIPHERAL [None]
